FAERS Safety Report 5411413-3 (Version None)
Quarter: 2007Q3

REPORT INFORMATION
  Report Type: 
  Country: None (occurrence: None)
  Receive Date: 20070810
  Receipt Date: 20070806
  Transmission Date: 20080115
  Serious: Yes (Hospitalization)
  Sender: FDA-Public Use
  Company Number: US-JNJFOC-20070800557

PATIENT
  Sex: Male

DRUGS (3)
  1. BLINDED; RISPERIDONE [Suspect]
     Indication: POST-TRAUMATIC STRESS DISORDER
     Route: 048
  2. PLACEBO [Suspect]
     Indication: POST-TRAUMATIC STRESS DISORDER
     Route: 048
  3. DEPAKOTE [Concomitant]

REACTIONS (2)
  - ATTENTION DEFICIT/HYPERACTIVITY DISORDER [None]
  - POST-TRAUMATIC STRESS DISORDER [None]
